FAERS Safety Report 12383334 (Version 3)
Quarter: 2016Q3

REPORT INFORMATION
  Report Type: Spontaneous
  Country: FR (occurrence: FR)
  Receive Date: 20160518
  Receipt Date: 20160830
  Transmission Date: 20161109
  Serious: Yes (Hospitalization, Other)
  Sender: FDA-Public Use
  Company Number: FR-GILEAD-2016-0210776

PATIENT
  Age: 57 Year
  Sex: Male
  Weight: 96 kg

DRUGS (8)
  1. ZYDELIG [Suspect]
     Active Substance: IDELALISIB
     Dosage: 100 MG, BID
     Route: 065
     Dates: start: 20151210, end: 201603
  2. RITUXIMAB [Concomitant]
     Active Substance: RITUXIMAB
     Indication: CHRONIC LYMPHOCYTIC LEUKAEMIA
     Dosage: UNK
  3. PREVISCAN                          /00789001/ [Concomitant]
     Active Substance: FLUINDIONE
     Dosage: UNK
     Route: 048
     Dates: start: 20150526
  4. BACTRIM [Concomitant]
     Active Substance: SULFAMETHOXAZOLE\TRIMETHOPRIM
     Dosage: UNK
     Route: 048
     Dates: start: 20150526
  5. ZYDELIG [Suspect]
     Active Substance: IDELALISIB
     Indication: CHRONIC LYMPHOCYTIC LEUKAEMIA
     Dosage: UNK
     Route: 065
     Dates: start: 20150526, end: 20151030
  6. ZYDELIG [Suspect]
     Active Substance: IDELALISIB
     Dosage: 100 MG, QD
     Route: 065
     Dates: start: 2016, end: 201604
  7. ZYDELIG [Suspect]
     Active Substance: IDELALISIB
     Dosage: 100 MG, QOD
     Route: 065
     Dates: start: 201604
  8. ZELITREX [Concomitant]
     Active Substance: VALACYCLOVIR HYDROCHLORIDE
     Dosage: UNK
     Route: 048
     Dates: start: 20150526

REACTIONS (12)
  - Lipase increased [Recovered/Resolved]
  - Pyrexia [Recovered/Resolved]
  - Electrolyte imbalance [Recovered/Resolved]
  - Off label use [Unknown]
  - Diarrhoea [Recovered/Resolved]
  - Transaminases increased [Recovered/Resolved]
  - Diarrhoea [Recovered/Resolved]
  - Diarrhoea [Recovered/Resolved]
  - Lipase increased [Recovered/Resolved]
  - Neutropenia [Recovered/Resolved]
  - Dehydration [Recovered/Resolved]
  - Neutropenia [Recovered/Resolved]

NARRATIVE: CASE EVENT DATE: 2015
